FAERS Safety Report 11599104 (Version 2)
Quarter: 2020Q4

REPORT INFORMATION
  Report Type: Report from Study
  Country: US (occurrence: US)
  Receive Date: 20151006
  Receipt Date: 20201111
  Transmission Date: 20210113
  Serious: Yes (Hospitalization)
  Sender: FDA-Public Use
  Company Number: US-ROCHE-1641303

PATIENT
  Age: 64 Year
  Sex: Female
  Weight: 76 kg

DRUGS (8)
  1. DOCETAXEL. [Suspect]
     Active Substance: DOCETAXEL
     Indication: INVASIVE BREAST CARCINOMA
     Dosage: TA1, CYCLE 1: 75MG/M2 OVER 60 MIN ON DAY 1 Q3 WEEKS
     Route: 042
     Dates: start: 20150518
  2. TRASTUZUMAB. [Suspect]
     Active Substance: TRASTUZUMAB
     Dosage: TA1, CYCLE 2-6: 6MG/KG OVER 30-60 MIN ON DAY 1 Q3WEEKS (IT IS RECOMMENDED THAT ADJUVANT TRASTUZUMAB
     Route: 042
  3. CARBOPLATIN. [Suspect]
     Active Substance: CARBOPLATIN
     Indication: INVASIVE BREAST CARCINOMA
     Dosage: TA1, CYCLE 1: AUC=6 MG/ML/MIN OVER 30-60 MIN ON DAY 1 Q3 WEEKS
     Route: 042
     Dates: start: 20150518
  4. CARBOPLATIN. [Suspect]
     Active Substance: CARBOPLATIN
     Dosage: TA1, CYCLE 2-6: AUC=6 MG/ML/MIN IV OVER 30-60 MIN ON DAY 1 Q3 WEEKS?AT CYCLE 3, A REDUCED DOSE OF AU
     Route: 042
  5. PERTUZUMAB. [Suspect]
     Active Substance: PERTUZUMAB
     Indication: INVASIVE BREAST CARCINOMA
     Dosage: TA1, CYCLE 1: LOADING DOSE OF 840MG OVER 60 MIN ON DAY 1
     Route: 042
     Dates: start: 20150518
  6. PERTUZUMAB. [Suspect]
     Active Substance: PERTUZUMAB
     Dosage: TA1, CYCLE 2-6: 420MG OVER 30-60 MIN ON DAY 1 Q3 WEEKS?IT WAS NOT GIVEN ON CYCLE 3
     Route: 042
  7. DOCETAXEL. [Suspect]
     Active Substance: DOCETAXEL
     Dosage: TA1, CYCLE 2-6: 75MG/M2 IV OVER 60 MIN ON DAY 1 Q3 WEEKS?AT CYCLE 3 A REDUCED DOSE OF 110MG WAS GIVE
     Route: 042
  8. TRASTUZUMAB. [Suspect]
     Active Substance: TRASTUZUMAB
     Indication: INVASIVE BREAST CARCINOMA
     Dosage: TA1, CYCLE 1: 8MG/KG IV OVER 90 MIN ON DAY 1
     Route: 042
     Dates: start: 20150518

REACTIONS (1)
  - Diverticulitis [Recovered/Resolved]

NARRATIVE: CASE EVENT DATE: 20150616
